FAERS Safety Report 9751483 (Version 1)
Quarter: 2013Q4

REPORT INFORMATION
  Report Type: Spontaneous
  Country: US (occurrence: US)
  Receive Date: 20131212
  Receipt Date: 20131212
  Transmission Date: 20140711
  Serious: No
  Sender: FDA-Public Use
  Company Number: US-PURDUE-USA-2013-0106907

PATIENT
  Sex: Female

DRUGS (2)
  1. DILAUDID TABLET [Suspect]
     Indication: PAIN
     Dosage: 4 MG, UNK
     Route: 048
  2. OXYCODONE HCL IMMEDIATE RELEASE (91-490) [Suspect]

REACTIONS (1)
  - Vomiting [Unknown]
